FAERS Safety Report 12258328 (Version 1)
Quarter: 2016Q2

REPORT INFORMATION
  Report Type: Spontaneous
  Country: US (occurrence: US)
  Receive Date: 20160412
  Receipt Date: 20160412
  Transmission Date: 20160815
  Serious: Yes (Other)
  Sender: FDA-Public Use
  Company Number: US-IMPAX LABORATORIES, INC-2016-IPXL-00349

PATIENT
  Age: 48 Year
  Sex: Male
  Weight: 72 kg

DRUGS (2)
  1. CLOZAPINE. [Interacting]
     Active Substance: CLOZAPINE
     Indication: SCHIZOPHRENIA
     Dosage: 200 MG EVERY MORNING AND 500 MG EVERY EVENING
     Route: 048
  2. ADRENACLICK [Suspect]
     Active Substance: EPINEPHRINE
     Indication: HYPOTENSION
     Dosage: 5-10 MCG BOLUSES
     Route: 065

REACTIONS (3)
  - Drug interaction [Recovered/Resolved]
  - Mean arterial pressure decreased [Recovered/Resolved]
  - Paradoxical pressor response [Recovered/Resolved]
